FAERS Safety Report 9390275 (Version 3)
Quarter: 2015Q4

REPORT INFORMATION
  Report Type: Report from Study
  Country: US (occurrence: US)
  Receive Date: 20130709
  Receipt Date: 20151230
  Transmission Date: 20160305
  Serious: Yes (Death)
  Sender: FDA-Public Use
  Company Number: US-ROCHE-1246345

PATIENT
  Age: 56 Year
  Sex: Male

DRUGS (5)
  1. ZANTAC [Concomitant]
     Active Substance: RANITIDINE HYDROCHLORIDE
     Route: 065
  2. ZELBORAF [Suspect]
     Active Substance: VEMURAFENIB
     Dosage: RECEIVED ON 20/MAY/2013
     Route: 048
  3. NORVASC [Concomitant]
     Active Substance: AMLODIPINE BESYLATE
     Route: 065
  4. ZELBORAF [Suspect]
     Active Substance: VEMURAFENIB
     Indication: MALIGNANT MELANOMA
     Dosage: RECEIVED ON 19/JUN/2013
     Route: 048
  5. DECADRON [Concomitant]
     Active Substance: DEXAMETHASONE
     Route: 065

REACTIONS (3)
  - Death [Fatal]
  - Oedema peripheral [Unknown]
  - Bradykinesia [Unknown]

NARRATIVE: CASE EVENT DATE: 20130627
